FAERS Safety Report 5335383-1 (Version None)
Quarter: 2007Q2

REPORT INFORMATION
  Report Type: 
  Country: None (occurrence: None)
  Receive Date: 20070327
  Receipt Date: 20061019
  Transmission Date: 20071010
  Serious: Yes (Hospitalization)
  Sender: FDA-Public Use
  Company Number: HQWYE382420OCT06

PATIENT
  Age: 41 Year
  Sex: Female
  Weight: 59.02 kg

DRUGS (1)
  1. PROTONIX [Suspect]
     Indication: ULCER
     Dosage: 40 MG 1X PER 1 DAY ORAL
     Route: 048
     Dates: start: 20060725, end: 20060727

REACTIONS (3)
  - CHEST PAIN [None]
  - LIPIDS INCREASED [None]
  - PANCREATITIS [None]
